FAERS Safety Report 11655591 (Version 1)
Quarter: 2015Q4

REPORT INFORMATION
  Report Type: Spontaneous
  Country: US (occurrence: US)
  Receive Date: 20151023
  Receipt Date: 20151023
  Transmission Date: 20160304
  Serious: Yes (Other)
  Sender: FDA-Public Use
  Company Number: US-BAYER-2015-446566

PATIENT

DRUGS (1)
  1. AVELOX [Suspect]
     Active Substance: MOXIFLOXACIN HYDROCHLORIDE
     Dosage: UNK

REACTIONS (8)
  - Nerve injury [None]
  - Thyroid cyst [None]
  - Hepatic cyst [None]
  - Fatigue [None]
  - Renal cyst [None]
  - Bedridden [None]
  - Vitamin D deficiency [None]
  - Muscle injury [None]
